FAERS Safety Report 20097106 (Version 1)
Quarter: 2021Q4

REPORT INFORMATION
  Report Type: Report from Study
  Country: EG (occurrence: EG)
  Receive Date: 20211122
  Receipt Date: 20211122
  Transmission Date: 20220303
  Serious: Yes (Hospitalization, Other)
  Sender: FDA-Public Use
  Company Number: EG-NOVARTISPH-NVSC2021EG255609

PATIENT
  Age: 14 Year
  Sex: Male

DRUGS (4)
  1. COSENTYX [Suspect]
     Active Substance: SECUKINUMAB
     Indication: Psoriasis
     Dosage: 1 DF, Q2W (EVERY 15 DAYS FOR ONE MONTH AS A LOADING DOSE)
     Route: 058
     Dates: start: 201809
  2. COSENTYX [Suspect]
     Active Substance: SECUKINUMAB
     Dosage: 1 DF, QMO (AS A MAINTENANCE DOSE)
     Route: 058
     Dates: end: 201812
  3. METHOTREXATE [Suspect]
     Active Substance: METHOTREXATE
     Indication: Psoriasis
     Dosage: 1 DF, QW
     Route: 065
     Dates: start: 20191109, end: 201912
  4. IMURAN [Concomitant]
     Active Substance: AZATHIOPRINE
     Indication: Immunosuppressant drug therapy
     Dosage: UNK
     Route: 065
     Dates: start: 2018

REACTIONS (23)
  - Myelitis [Recovered/Resolved]
  - Quadriplegia [Recovered/Resolved]
  - Immune system disorder [Recovered/Resolved]
  - Immune system disorder [Recovered/Resolved]
  - Immune system disorder [Recovered/Resolved]
  - Haemorrhage [Not Recovered/Not Resolved]
  - Seizure [Recovered/Resolved]
  - Chest pain [Recovered/Resolved]
  - Cardiac discomfort [Recovered/Resolved]
  - Feeling cold [Recovered/Resolved]
  - Pneumonitis [Recovered/Resolved]
  - Furuncle [Recovered/Resolved]
  - Bacterial infection [Recovered/Resolved]
  - Hypokinesia [Not Recovered/Not Resolved]
  - Ill-defined disorder [Not Recovered/Not Resolved]
  - Pain [Not Recovered/Not Resolved]
  - Nervous system disorder [Not Recovered/Not Resolved]
  - Condition aggravated [Recovered/Resolved]
  - Abscess [Recovered/Resolved]
  - Psoriasis [Not Recovered/Not Resolved]
  - Gait disturbance [Not Recovered/Not Resolved]
  - Inflammation [Recovered/Resolved]
  - Off label use [Unknown]

NARRATIVE: CASE EVENT DATE: 20181001
